FAERS Safety Report 8399320-8 (Version None)
Quarter: 2012Q2

REPORT INFORMATION
  Report Type: 
  Country: None (occurrence: None)
  Receive Date: 20120531
  Receipt Date: 20120529
  Transmission Date: 20120825
  Serious: No
  Sender: FDA-Public Use
  Company Number: US-PFIZER INC-2012129345

PATIENT
  Sex: Male
  Weight: 66.213 kg

DRUGS (3)
  1. LYRICA [Suspect]
     Indication: FIBROMYALGIA
     Dosage: 150 MG, 2X/DAY
     Route: 048
     Dates: start: 20120517
  2. XANAX [Concomitant]
     Indication: PANIC ATTACK
     Dosage: UNK
  3. WARFARIN [Concomitant]
     Indication: AORTIC VALVE DISEASE
     Dosage: UNK

REACTIONS (2)
  - SOMNOLENCE [None]
  - DIZZINESS [None]
